FAERS Safety Report 4680963-X (Version None)
Quarter: 2005Q2

REPORT INFORMATION
  Report Type: 
  Country: None (occurrence: None)
  Receive Date: 20050601
  Receipt Date: 20050519
  Transmission Date: 20051028
  Serious: Yes (Hospitalization)
  Sender: FDA-Public Use
  Company Number: 13488

PATIENT
  Age: 15 Year
  Sex: Male

DRUGS (10)
  1. CLOFARABINE [Suspect]
     Indication: ACUTE LYMPHOCYTIC LEUKAEMIA
     Dosage: 100 MG QD X 5 IV
     Route: 042
     Dates: start: 20041122, end: 20041123
  2. GRANISETRON [Concomitant]
  3. DEXAMETHASONE [Concomitant]
  4. ALLOPURINOL [Concomitant]
  5. SDD CAPSULES (AMPHOTERICIN B/COLISTINE/NEIOMYCINE SULPHATE [Concomitant]
  6. BACTRIMEL [Concomitant]
  7. AMPHOTERICINE [Concomitant]
  8. FUNGISONE [Concomitant]
  9. ACETAMINOPHEN [Concomitant]
  10. ALBUMIN (HUMAN) [Concomitant]

REACTIONS (29)
  - ASCITES [None]
  - BACTERIA STOOL IDENTIFIED [None]
  - BLOOD BILIRUBIN INCREASED [None]
  - CEREBRAL ISCHAEMIA [None]
  - CONJUNCTIVAL HAEMORRHAGE [None]
  - CONJUNCTIVITIS [None]
  - CONVULSION [None]
  - DEHYDRATION [None]
  - DIARRHOEA [None]
  - DYSARTHRIA [None]
  - EMBOLISM [None]
  - FEBRILE NEUTROPENIA [None]
  - FIBRIN D DIMER INCREASED [None]
  - FLUID OVERLOAD [None]
  - HEPATOMEGALY [None]
  - HYPERGLYCAEMIA [None]
  - HYPERTENSION [None]
  - KIDNEY ENLARGEMENT [None]
  - LIVER FUNCTION TEST ABNORMAL [None]
  - METABOLIC ACIDOSIS [None]
  - PANCREATITIS [None]
  - PLEURAL EFFUSION [None]
  - PULMONARY OEDEMA [None]
  - RECTAL HAEMORRHAGE [None]
  - RENAL IMPAIRMENT [None]
  - SOMNOLENCE [None]
  - TACHYCARDIA [None]
  - TACHYPNOEA [None]
  - TUMOUR LYSIS SYNDROME [None]
